FAERS Safety Report 12656533 (Version 1)
Quarter: 2016Q3

REPORT INFORMATION
  Report Type: Spontaneous
  Country: US (occurrence: US)
  Receive Date: 20160816
  Receipt Date: 20160816
  Transmission Date: 20161109
  Serious: No
  Sender: FDA-Public Use
  Company Number: US-PERRIGO-16US002029

PATIENT
  Age: 78 Year
  Sex: Female
  Weight: 48.98 kg

DRUGS (2)
  1. WARFARIN [Concomitant]
     Active Substance: WARFARIN
     Indication: ATRIAL FIBRILLATION
     Dosage: UNK
     Route: 048
  2. LORATADINE. [Suspect]
     Active Substance: LORATADINE
     Indication: URTICARIA
     Dosage: 10 MG, SINGLE AT 1930
     Route: 048
     Dates: start: 20160220, end: 20160220

REACTIONS (4)
  - Diarrhoea [Recovered/Resolved]
  - Vomiting [Recovered/Resolved]
  - Abdominal pain upper [Recovered/Resolved]
  - Off label use [Recovered/Resolved]

NARRATIVE: CASE EVENT DATE: 20160220
